FAERS Safety Report 6843370-7 (Version None)
Quarter: 2010Q3

REPORT INFORMATION
  Report Type: 
  Country: None (occurrence: None)
  Receive Date: 20100712
  Receipt Date: 20100626
  Transmission Date: 20110219
  Serious: Yes (Other)
  Sender: FDA-Public Use
  Company Number: 2010AP001399

PATIENT
  Age: 32 Year
  Sex: Male

DRUGS (1)
  1. ALBUTEROL SULFATE [Suspect]

REACTIONS (3)
  - ACUTE RESPIRATORY FAILURE [None]
  - LACTIC ACIDOSIS [None]
  - METABOLIC ACIDOSIS [None]
